FAERS Safety Report 5673261-9 (Version None)
Quarter: 2008Q2

REPORT INFORMATION
  Report Type: 
  Country: None (occurrence: None)
  Receive Date: 20080219
  Receipt Date: 20071128
  Transmission Date: 20081010
  Serious: No
  Sender: FDA-Public Use
  Company Number: TPA2007A02430

PATIENT
  Age: 77 Year
  Sex: Female
  Weight: 62.5964 kg

DRUGS (2)
  1. ROZEREM [Suspect]
     Indication: MIDDLE INSOMNIA
     Dosage: 8 MG, ONCE, PER ORAL
     Route: 048
     Dates: start: 20071127, end: 20071127
  2. LEVOTHYROXINE SODIUM [Concomitant]

REACTIONS (6)
  - DIZZINESS [None]
  - FATIGUE [None]
  - HEADACHE [None]
  - MIDDLE INSOMNIA [None]
  - NERVOUSNESS [None]
  - POOR QUALITY SLEEP [None]
